FAERS Safety Report 6548252-6 (Version None)
Quarter: 2010Q1

REPORT INFORMATION
  Report Type: 
  Country: None (occurrence: None)
  Receive Date: 20100124
  Receipt Date: 20090331
  Transmission Date: 20100710
  Serious: No
  Sender: FDA-Public Use
  Company Number: US-ALLERGAN-0904381US

PATIENT
  Sex: Female

DRUGS (5)
  1. RESTASIS [Suspect]
     Indication: DRY EYE
     Route: 047
     Dates: start: 20090311
  2. FLUOROMETHOLONE [Concomitant]
     Dates: end: 20090301
  3. ZOCOR [Concomitant]
  4. PLAVIX [Concomitant]
  5. COZAAR [Concomitant]

REACTIONS (1)
  - EYE IRRITATION [None]
